FAERS Safety Report 4510668-7 (Version None)
Quarter: 2004Q4

REPORT INFORMATION
  Report Type: 
  Country: None (occurrence: None)
  Receive Date: 20041025
  Receipt Date: 20041209
  Transmission Date: 20050328
  Serious: Yes (Other)
  Sender: FDA-Public Use
  Company Number: NSADSS2002039505

PATIENT
  Age: 31 Year
  Sex: Female
  Weight: 75.7507 kg

DRUGS (6)
  1. REMICADE [Suspect]
     Indication: COLITIS
     Dosage: 380 MG, 1 IN 1 AS NECESSARY, INTRAVENOUS DRIP
     Route: 041
  2. REMICADE [Suspect]
     Indication: CROHN'S DISEASE
     Dosage: 380 MG, 1 IN 1 AS NECESSARY, INTRAVENOUS DRIP
     Route: 041
  3. ASACOL [Concomitant]
  4. MERCAPTOPURINE [Concomitant]
  5. PREDNISONE [Concomitant]
  6. PROTONIX [Concomitant]

REACTIONS (2)
  - CONDITION AGGRAVATED [None]
  - THERAPEUTIC RESPONSE DECREASED [None]
